FAERS Safety Report 8327650-4 (Version None)
Quarter: 2012Q2

REPORT INFORMATION
  Report Type: 
  Country: None (occurrence: None)
  Receive Date: 20120502
  Receipt Date: 20120418
  Transmission Date: 20120825
  Serious: Yes (Life-Threatening)
  Sender: FDA-Public Use
  Company Number: CN-JNJFOC-20110403942

PATIENT
  Sex: Female

DRUGS (1)
  1. ULTRACET [Suspect]
     Indication: PAIN
     Dosage: PARACETAMOL 325 MG/ TRAMADOL HYDROCHLORIDE 37.5 MG ONCE DAILY
     Route: 048
     Dates: start: 20110407, end: 20110408

REACTIONS (3)
  - DIZZINESS [None]
  - CARDIAC DISCOMFORT [None]
  - COLD SWEAT [None]
